FAERS Safety Report 4941985-4 (Version None)
Quarter: 2006Q1

REPORT INFORMATION
  Report Type: 
  Country: None (occurrence: None)
  Receive Date: 20060308
  Receipt Date: 20060222
  Transmission Date: 20060701
  Serious: Yes (Life-Threatening, Hospitalization)
  Sender: FDA-Public Use
  Company Number: 2006SP000899

PATIENT
  Age: 58 Year
  Sex: Female
  Weight: 87.5442 kg

DRUGS (7)
  1. LUNESTA [Suspect]
     Indication: INSOMNIA
     Dosage: 3 MG; HS;ORAL; 90 MG; 1X; ORAL
     Route: 048
     Dates: start: 20051201, end: 20060201
  2. LUNESTA [Suspect]
     Indication: INSOMNIA
     Dosage: 3 MG; HS;ORAL; 90 MG; 1X; ORAL
     Route: 048
     Dates: start: 20060221, end: 20060221
  3. PERPHENAZINE [Suspect]
     Dosage: ORAL
     Route: 048
     Dates: start: 20060221, end: 20060221
  4. LEXAPRO [Concomitant]
  5. GLUCOPHAGE [Concomitant]
  6. ATORVASTATIN CALCIUM [Concomitant]
  7. PERPHENAZINE [Concomitant]

REACTIONS (4)
  - MULTIPLE DRUG OVERDOSE INTENTIONAL [None]
  - NAUSEA [None]
  - ORTHOSTATIC HYPOTENSION [None]
  - VOMITING [None]
